FAERS Safety Report 17854088 (Version 1)
Quarter: 2020Q2

REPORT INFORMATION
  Report Type: Spontaneous
  Country: FR (occurrence: FR)
  Receive Date: 20200603
  Receipt Date: 20200603
  Transmission Date: 20200714
  Serious: Yes (Hospitalization)
  Sender: FDA-Public Use
  Company Number: NVSC2020FR151842

PATIENT
  Age: 62 Year
  Sex: Female
  Weight: 107 kg

DRUGS (2)
  1. AMOXICILLINE [Suspect]
     Active Substance: AMOXICILLIN
     Indication: OSTEOARTHRITIS
     Dosage: 12 G, QD
     Route: 042
     Dates: start: 20191105, end: 20191218
  2. AMOXICILLINE [Suspect]
     Active Substance: AMOXICILLIN
     Dosage: 12 G, QD
     Route: 042
     Dates: start: 20191218, end: 20191223

REACTIONS (1)
  - Acute kidney injury [Recovered/Resolved]

NARRATIVE: CASE EVENT DATE: 20191223
